FAERS Safety Report 22308258 (Version 1)
Quarter: 2023Q2

REPORT INFORMATION
  Report Type: Spontaneous
  Country: None (occurrence: US)
  Receive Date: 20230511
  Receipt Date: 20230511
  Transmission Date: 20230722
  Serious: Yes (Life-Threatening, Hospitalization, Other)
  Sender: FDA-Public Use
  Company Number: US-Therakind Limited-2141353

PATIENT
  Age: 66 Year
  Sex: Female

DRUGS (4)
  1. METHOTREXATE [Suspect]
     Active Substance: METHOTREXATE
     Indication: Placental neoplasm
  2. DACTINOMYCIN [Suspect]
     Active Substance: DACTINOMYCIN
  3. CISPLATIN [Suspect]
     Active Substance: CISPLATIN
  4. ETOPOSIDE PHOSPHATE [Suspect]
     Active Substance: ETOPOSIDE PHOSPHATE

REACTIONS (7)
  - Thrombocytopenia [Unknown]
  - Mucosal inflammation [Unknown]
  - Sepsis [Unknown]
  - Anaemia [Unknown]
  - Drug intolerance [Unknown]
  - Neutropenia [Unknown]
  - Product use in unapproved indication [Unknown]
